FAERS Safety Report 7026578-X (Version None)
Quarter: 2010Q4

REPORT INFORMATION
  Report Type: 
  Country: None (occurrence: None)
  Receive Date: 20101004
  Receipt Date: 20100921
  Transmission Date: 20110411
  Serious: Yes (Hospitalization, Other)
  Sender: FDA-Public Use
  Company Number: US-ELI_LILLY_AND_COMPANY-US201008005541

PATIENT
  Sex: Female

DRUGS (4)
  1. FORTEO [Suspect]
     Indication: OSTEOPOROSIS
     Dosage: 20 UG, DAILY (1/D)
     Route: 065
  2. FORTEO [Suspect]
     Dosage: 20 UG, DAILY (1/D)
     Route: 065
     Dates: start: 20100811
  3. ANTIHYPERTENSIVES [Concomitant]
  4. VITAMIN TAB [Concomitant]

REACTIONS (6)
  - DRUG DOSE OMISSION [None]
  - FALL [None]
  - HOSPITALISATION [None]
  - RIB FRACTURE [None]
  - SPINAL FRACTURE [None]
  - URINARY TRACT INFECTION [None]
